FAERS Safety Report 12663132 (Version 1)
Quarter: 2016Q3

REPORT INFORMATION
  Report Type: Spontaneous
  Country: US (occurrence: None)
  Receive Date: 20160817
  Receipt Date: 20160817
  Transmission Date: 20161109
  Serious: Yes (Hospitalization, Disabling, Other)
  Sender: FDA-Public Use
  Company Number: None

PATIENT
  Age: 31 Year
  Sex: Female
  Weight: 85.28 kg

DRUGS (3)
  1. ZINC [Concomitant]
     Active Substance: ZINC\ZINC CHLORIDE
  2. PARAGARD T 380A [Suspect]
     Active Substance: COPPER
  3. IBUEPROFEN [Concomitant]

REACTIONS (7)
  - Anxiety [None]
  - Intentional medical device removal by patient [None]
  - Food allergy [None]
  - Mental disorder [None]
  - Pruritus [None]
  - Nervous system disorder [None]
  - Alopecia [None]

NARRATIVE: CASE EVENT DATE: 20160811
